FAERS Safety Report 16947032 (Version 2)
Quarter: 2019Q4

REPORT INFORMATION
  Report Type: Spontaneous
  Country: US (occurrence: US)
  Receive Date: 20191022
  Receipt Date: 20191108
  Transmission Date: 20200122
  Serious: Yes (Hospitalization, Other)
  Sender: FDA-Public Use
  Company Number: US-PFIZER INC-2019453125

PATIENT
  Age: 25 Year
  Sex: Female
  Weight: 97.52 kg

DRUGS (1)
  1. DEPO-PROVERA [Suspect]
     Active Substance: MEDROXYPROGESTERONE ACETATE
     Indication: CONTRACEPTION
     Dosage: UNK
     Dates: start: 20191017

REACTIONS (7)
  - Bone pain [Unknown]
  - Blood calcium decreased [Unknown]
  - Back pain [Not Recovered/Not Resolved]
  - Depression [Not Recovered/Not Resolved]
  - Bone density decreased [Unknown]
  - Haemorrhage [Not Recovered/Not Resolved]
  - Tooth loss [Not Recovered/Not Resolved]
